FAERS Safety Report 7626976-7 (Version None)
Quarter: 2011Q3

REPORT INFORMATION
  Report Type: 
  Country: None (occurrence: None)
  Receive Date: 20110721
  Receipt Date: 20110716
  Transmission Date: 20111222
  Serious: Yes (Hospitalization)
  Sender: FDA-Public Use
  Company Number: US-BRISTOL-MYERS SQUIBB COMPANY-15907124

PATIENT
  Age: 65 Year
  Sex: Female
  Weight: 80 kg

DRUGS (1)
  1. IPILIMUMAB [Suspect]
     Indication: MALIGNANT MELANOMA
     Dosage: CYCLE:21DAYS,10MG/KG OVER 90MIN ON DAY 1,1 Q 12 WEEKS
     Route: 042
     Dates: start: 20110615, end: 20110706

REACTIONS (3)
  - RENAL FAILURE ACUTE [None]
  - PYREXIA [None]
  - BLOOD CREATININE INCREASED [None]
